FAERS Safety Report 23789251 (Version 4)
Quarter: 2024Q2

REPORT INFORMATION
  Report Type: Spontaneous
  Country: US (occurrence: US)
  Receive Date: 20240426
  Receipt Date: 20240626
  Transmission Date: 20240716
  Serious: Yes (Death, Other)
  Sender: FDA-Public Use
  Company Number: US-DAIICHI SANKYO, INC.-DSU-2024-118649AA

PATIENT
  Age: 73 Year
  Sex: Female
  Weight: 59.41 kg

DRUGS (2)
  1. ENHERTU [Suspect]
     Active Substance: FAM-TRASTUZUMAB DERUXTECAN-NXKI
     Indication: Uterine cancer
     Dosage: 5.4 MG/KG, ONCE EVERY 3 WK
     Route: 065
     Dates: start: 20231013, end: 20231013
  2. ENHERTU [Suspect]
     Active Substance: FAM-TRASTUZUMAB DERUXTECAN-NXKI
     Dosage: 5.4 MG/KG
     Route: 065
     Dates: start: 20240308, end: 20240308

REACTIONS (3)
  - Respiratory failure [Fatal]
  - Interstitial lung disease [Fatal]
  - Off label use [Unknown]

NARRATIVE: CASE EVENT DATE: 20240313
